FAERS Safety Report 7851279-5 (Version None)
Quarter: 2011Q4

REPORT INFORMATION
  Report Type: 
  Country: None (occurrence: None)
  Receive Date: 20111026
  Receipt Date: 20110831
  Transmission Date: 20120403
  Serious: No
  Sender: FDA-Public Use
  Company Number: US-BAYER-2011-087668

PATIENT
  Age: 86 Year
  Sex: Female
  Weight: 59 kg

DRUGS (2)
  1. ALEVE (CAPLET) [Suspect]
     Indication: MYALGIA
     Dosage: 1 U, QD
     Route: 048
     Dates: start: 20110828, end: 20110830
  2. LEVOTHYROXINE SODIUM [Suspect]

REACTIONS (1)
  - ABDOMINAL DISCOMFORT [None]
